FAERS Safety Report 6191104-4 (Version None)
Quarter: 2009Q2

REPORT INFORMATION
  Report Type: 
  Country: None (occurrence: None)
  Receive Date: 20090515
  Receipt Date: 20090508
  Transmission Date: 20091009
  Serious: Yes (Other)
  Sender: FDA-Public Use
  Company Number: NL-TEVA-194407ISR

PATIENT
  Age: 7 Month
  Sex: Female

DRUGS (1)
  1. BACTRIM [Suspect]
     Indication: URINARY TRACT INFLAMMATION
     Route: 048
     Dates: start: 20081101

REACTIONS (2)
  - URINARY TRACT INFLAMMATION [None]
  - VESICOURETERIC REFLUX [None]
